FAERS Safety Report 7017305-0 (Version None)
Quarter: 2010Q3

REPORT INFORMATION
  Report Type: 
  Country: None (occurrence: None)
  Receive Date: 20100928
  Receipt Date: 20100914
  Transmission Date: 20110219
  Serious: No
  Sender: FDA-Public Use
  Company Number: US-BIOGENIDEC-2010BI031955

PATIENT
  Age: 55 Year
  Sex: Female

DRUGS (4)
  1. AVONEX [Suspect]
     Indication: MULTIPLE SCLEROSIS
     Route: 030
     Dates: end: 20000201
  2. AVONEX [Suspect]
     Route: 030
     Dates: start: 20030602, end: 20070517
  3. AVONEX [Suspect]
     Route: 030
     Dates: start: 20091204, end: 20100514
  4. AVONEX [Suspect]
     Route: 030
     Dates: start: 20100827

REACTIONS (1)
  - JC VIRUS TEST POSITIVE [None]
